FAERS Safety Report 9816408 (Version 1)
Quarter: 2014Q1

REPORT INFORMATION
  Report Type: Spontaneous
  Country: US (occurrence: US)
  Receive Date: 20140114
  Receipt Date: 20140114
  Transmission Date: 20141002
  Serious: No
  Sender: FDA-Public Use
  Company Number: US-TARO-2013P1018502

PATIENT
  Age: 18 Year
  Sex: Male
  Weight: 58.97 kg

DRUGS (1)
  1. DESOXIMETASONE CREAM USP 0.05% [Suspect]
     Route: 061
     Dates: start: 20130809

REACTIONS (1)
  - Drug ineffective [Not Recovered/Not Resolved]
